FAERS Safety Report 16170771 (Version 1)
Quarter: 2019Q2

REPORT INFORMATION
  Report Type: Report from Study
  Country: ES (occurrence: ES)
  Receive Date: 20190408
  Receipt Date: 20190408
  Transmission Date: 20190711
  Serious: Yes (Hospitalization, Other)
  Sender: FDA-Public Use
  Company Number: ES-MYLANLABS-2019M1031453

PATIENT
  Age: 78 Year
  Sex: Female

DRUGS (8)
  1. FENTANYL. [Suspect]
     Active Substance: FENTANYL
     Indication: CANCER PAIN
     Dosage: 1 DOSAGE FORM, Q3D (C/72 HORAS)
     Route: 062
     Dates: start: 2017
  2. SEPTRIN [Concomitant]
     Active Substance: SULFAMETHOXAZOLE\TRIMETHOPRIM
     Dosage: UNK
     Route: 048
  3. ONDANSETRON [Concomitant]
     Active Substance: ONDANSETRON
     Dosage: 8 MGS/P (1 DOSIS DIARIA M?S MENOS)
     Route: 048
  4. DUPHALAC [Concomitant]
     Active Substance: LACTULOSE
     Dosage: AL DESAYUNO
     Route: 048
  5. PRIMPERAN [Concomitant]
     Active Substance: METOCLOPRAMIDE HYDROCHLORIDE
     Dosage: 10 ML C/8 HRS
     Route: 048
  6. SEVREDOL [Interacting]
     Active Substance: MORPHINE
     Indication: CANCER PAIN
     Dosage: 1 A 2 DIARIOS
     Route: 048
     Dates: start: 2017
  7. OMEPRAZOL                          /00661201/ [Concomitant]
     Active Substance: OMEPRAZOLE
     Dosage: UNK
     Route: 048
  8. DEXAMETASONA                       /00016001/ [Concomitant]
     Active Substance: DEXAMETHASONE
     Dosage: 1-0-0
     Route: 048

REACTIONS (5)
  - Vomiting [Recovered/Resolved]
  - Drug interaction [Unknown]
  - Ileus [Recovered/Resolved]
  - Nausea [Recovered/Resolved]
  - Constipation [Recovered/Resolved]

NARRATIVE: CASE EVENT DATE: 2017
